FAERS Safety Report 8499882-6 (Version None)
Quarter: 2012Q3

REPORT INFORMATION
  Report Type: 
  Country: None (occurrence: None)
  Receive Date: 20120710
  Receipt Date: 20120702
  Transmission Date: 20120928
  Serious: Yes (Hospitalization)
  Sender: FDA-Public Use
  Company Number: US-BAYER-2012-021900

PATIENT
  Age: 29 Year
  Sex: Female
  Weight: 102.4 kg

DRUGS (15)
  1. ASMANEX TWISTHALER [Concomitant]
     Dosage: 220 MCG 1 PUFF DAILY
     Route: 048
     Dates: start: 20100408
  2. NASONEX [Concomitant]
     Dosage: 50 MCG 1 SPRAY DAILY
     Dates: start: 20100408
  3. YAZ [Suspect]
     Dosage: UNK
     Dates: start: 20100110, end: 20110201
  4. PATANASE [Concomitant]
     Dosage: 0.6 % 1 SPRAY DAILY
     Route: 045
     Dates: start: 20100110
  5. PATADAY [Concomitant]
     Dosage: 0.2 %
     Route: 047
     Dates: start: 20100110
  6. METOCLOPRAMIDE HYDROCHLORIDE [Concomitant]
     Dosage: 10 MG, UNK
     Route: 048
     Dates: start: 20100326
  7. SPIRONOLACTONE [Concomitant]
     Dosage: UNK
     Dates: start: 20090101
  8. AZITHROMYCIN [Concomitant]
     Dosage: 250 MG, UNK
     Route: 048
     Dates: start: 20100105
  9. PATANASE [Concomitant]
     Dosage: 0.6 % 1 SPRAY DAILY
     Route: 045
     Dates: start: 20100408
  10. ASMANEX TWISTHALER [Concomitant]
     Dosage: 220 MCG 1 PUFF DAILY
     Route: 048
     Dates: start: 20100111
  11. ZYRTEC [Concomitant]
     Dosage: 10 MG, DAILY
     Dates: start: 20100408
  12. NASONEX [Concomitant]
     Dosage: 50 MCG 1 SPRAY DAILY
     Route: 045
     Dates: start: 20100111
  13. CEFDINIR [Concomitant]
     Dosage: 300 MG, UNK
     Route: 048
     Dates: start: 20100219
  14. PANTOPRAZOLE SODIUM [Concomitant]
     Dosage: 40 MG, UNK
     Route: 048
     Dates: start: 20100326
  15. YAZ [Suspect]
     Indication: HORMONE LEVEL ABNORMAL
     Dosage: UNK
     Dates: start: 20100110, end: 20110201

REACTIONS (5)
  - CHOLECYSTITIS ACUTE [None]
  - VOMITING [None]
  - PAIN [None]
  - NAUSEA [None]
  - ABDOMINAL PAIN [None]
